FAERS Safety Report 5468337-5 (Version None)
Quarter: 2007Q3

REPORT INFORMATION
  Report Type: 
  Country: None (occurrence: None)
  Receive Date: 20070926
  Receipt Date: 20070920
  Transmission Date: 20080115
  Serious: Yes (Other)
  Sender: FDA-Public Use
  Company Number: A0683348A

PATIENT
  Age: 70 Year
  Sex: Female

DRUGS (4)
  1. ADVAIR DISKUS 100/50 [Suspect]
     Indication: ASTHMA
     Route: 055
     Dates: start: 20050901
  2. PRINIVIL [Concomitant]
  3. METOPROLOL [Concomitant]
  4. LASIX [Concomitant]

REACTIONS (3)
  - CATARACT [None]
  - HERPES ZOSTER OPHTHALMIC [None]
  - MACULAR DEGENERATION [None]
